FAERS Safety Report 12836581 (Version 1)
Quarter: 2016Q4

REPORT INFORMATION
  Report Type: Report from Study
  Country: FR (occurrence: FR)
  Receive Date: 20161011
  Receipt Date: 20161011
  Transmission Date: 20170207
  Serious: Yes (Hospitalization, Other)
  Sender: FDA-Public Use
  Company Number: FR-GILEAD-2016-0236717

PATIENT
  Age: 34 Year
  Sex: Female
  Weight: 86 kg

DRUGS (1)
  1. ELVITEGRAVIR/EMTRICITABINE/TENOFOVIR DF/COBICISTAT [Suspect]
     Active Substance: COBICISTAT\ELVITEGRAVIR\EMTRICITABINE\TENOFOVIR
     Indication: HIV INFECTION
     Dosage: 1 DF, QD
     Route: 048
     Dates: start: 20140409

REACTIONS (3)
  - Abdominal pain upper [Recovered/Resolved]
  - Renal colic [Recovered/Resolved]
  - Pollakiuria [Recovered/Resolved]

NARRATIVE: CASE EVENT DATE: 201404
